FAERS Safety Report 21107024 (Version 1)
Quarter: 2022Q3

REPORT INFORMATION
  Report Type: Spontaneous
  Country: US (occurrence: US)
  Receive Date: 20220720
  Receipt Date: 20220720
  Transmission Date: 20221027
  Serious: No
  Sender: FDA-Public Use
  Company Number: US-JAZZ-2022-US-013523

PATIENT
  Sex: Male

DRUGS (10)
  1. EPIDIOLEX [Suspect]
     Active Substance: CANNABIDIOL
     Indication: Epilepsy
     Dosage: 1.4 MILLILITRE, BID FOR 30 DAYS
     Route: 048
  2. EPIDIOLEX [Suspect]
     Active Substance: CANNABIDIOL
     Indication: Hyperadrenocorticism
  3. DANTROLENE SODIUM [Concomitant]
     Active Substance: DANTROLENE SODIUM
  4. ALBUTEROL SULFATE [Concomitant]
     Active Substance: ALBUTEROL SULFATE
  5. MIRALAX [Concomitant]
     Active Substance: POLYETHYLENE GLYCOL 3350
  6. KEPPRA [Concomitant]
     Active Substance: LEVETIRACETAM
  7. BACLOFEN [Concomitant]
     Active Substance: BACLOFEN
  8. PHENOBARBITAL [Concomitant]
     Active Substance: PHENOBARBITAL
  9. SCOPOLAMINE [Concomitant]
     Active Substance: SCOPOLAMINE
  10. VITAMIN D3 [Concomitant]
     Active Substance: CHOLECALCIFEROL

REACTIONS (1)
  - Product administration interrupted [Unknown]
